FAERS Safety Report 10574107 (Version 2)
Quarter: 2014Q4

REPORT INFORMATION
  Report Type: Report from Study
  Country: HK (occurrence: HK)
  Receive Date: 20141110
  Receipt Date: 20141113
  Transmission Date: 20150529
  Serious: Yes (Death)
  Sender: FDA-Public Use
  Company Number: CN-009507513-1411CHN002321

PATIENT
  Sex: Female

DRUGS (1)
  1. MK-3475 [Suspect]
     Active Substance: PEMBROLIZUMAB

REACTIONS (1)
  - Respiratory failure [Fatal]

NARRATIVE: CASE EVENT DATE: 20141009
